FAERS Safety Report 8586637-7 (Version None)
Quarter: 2012Q3

REPORT INFORMATION
  Report Type: 
  Country: None (occurrence: None)
  Receive Date: 20120810
  Receipt Date: 20120801
  Transmission Date: 20120928
  Serious: Yes (Other)
  Sender: FDA-Public Use
  Company Number: US-ABBOTT-12P-163-0963140-00

PATIENT
  Sex: Female
  Weight: 113.5 kg

DRUGS (9)
  1. CRESTOR [Concomitant]
     Indication: BLOOD CHOLESTEROL INCREASED
  2. COUMADIN [Concomitant]
     Indication: ATRIAL FIBRILLATION
  3. FOLIC ACID [Concomitant]
     Indication: RHEUMATOID ARTHRITIS
  4. CELEXA [Concomitant]
     Indication: DEPRESSION
  5. LANTUS [Concomitant]
     Indication: DIABETES MELLITUS
  6. METOPROLOL TARTRATE [Concomitant]
     Indication: HYPERTENSION
  7. HUMIRA [Suspect]
     Indication: RHEUMATOID ARTHRITIS
     Route: 058
     Dates: start: 20091101, end: 20120501
  8. LASIX [Concomitant]
     Indication: OEDEMA PERIPHERAL
  9. LISINOPRIL [Concomitant]
     Indication: HYPERTENSION

REACTIONS (7)
  - OEDEMA PERIPHERAL [None]
  - JOINT SWELLING [None]
  - FEMUR FRACTURE [None]
  - PAIN IN EXTREMITY [None]
  - INSOMNIA [None]
  - FALL [None]
  - ARTHRALGIA [None]
